FAERS Safety Report 9021906 (Version 1)
Quarter: 2013Q1

REPORT INFORMATION
  Report Type: Report from Study
  Country: CA (occurrence: CA)
  Receive Date: 20130118
  Receipt Date: 20130118
  Transmission Date: 20140127
  Serious: Yes (Other)
  Sender: FDA-Public Use
  Company Number: CA-JNJFOC-20130106180

PATIENT
  Age: 11 None
  Sex: Male
  Weight: 31.5 kg

DRUGS (6)
  1. REMICADE [Suspect]
     Indication: CROHN^S DISEASE
     Dosage: INFUSION NUMBER 10
     Route: 042
     Dates: start: 20130108
  2. REMICADE [Suspect]
     Indication: CROHN^S DISEASE
     Route: 042
     Dates: start: 201112
  3. FLOVENT [Concomitant]
     Indication: ASTHMA
     Route: 065
  4. CICLESONIDE [Concomitant]
     Indication: ASTHMA
     Route: 065
  5. TYLENOL [Concomitant]
     Indication: PREMEDICATION
     Route: 048
  6. HYDROCORTISONE [Concomitant]
     Indication: PREMEDICATION
     Route: 042

REACTIONS (7)
  - Respiratory disorder [Recovered/Resolved]
  - Throat tightness [Recovered/Resolved]
  - Infusion related reaction [Recovered/Resolved]
  - Erythema [Recovered/Resolved]
  - Cough [Recovered/Resolved]
  - Blood pressure increased [Recovered/Resolved]
  - Vomiting [Recovered/Resolved]
